FAERS Safety Report 21471903 (Version 2)
Quarter: 2023Q1

REPORT INFORMATION
  Report Type: Spontaneous
  Country: US (occurrence: US)
  Receive Date: 20221018
  Receipt Date: 20230315
  Transmission Date: 20230417
  Serious: No
  Sender: FDA-Public Use
  Company Number: US-BRISTOL-MYERS SQUIBB COMPANY-2022-121439

PATIENT
  Age: 74 Year
  Sex: Male
  Weight: 95.25 kg

DRUGS (1)
  1. REVLIMID [Suspect]
     Active Substance: LENALIDOMIDE
     Indication: B-cell lymphoma
     Dosage: FREQ: 21 D ON, 7 D OFF
     Route: 048
     Dates: start: 20230201

REACTIONS (2)
  - SARS-CoV-2 test positive [Recovering/Resolving]
  - Off label use [Unknown]
